FAERS Safety Report 8333012-6 (Version None)
Quarter: 2012Q2

REPORT INFORMATION
  Report Type: 
  Country: None (occurrence: None)
  Receive Date: 20120503
  Receipt Date: 20120424
  Transmission Date: 20120825
  Serious: Yes (Hospitalization)
  Sender: FDA-Public Use
  Company Number: PHHY2012MX036547

PATIENT
  Sex: Female

DRUGS (3)
  1. DIOVAN HCT [Suspect]
     Indication: HYPERTENSION
     Dosage: 1 DF (VALS 160 MG, HYDR 12.5 MG), PER DAY
     Dates: start: 20120314, end: 20120316
  2. LIPITOR [Concomitant]
  3. ALDACTONE [Concomitant]

REACTIONS (1)
  - GASTRIC INFECTION [None]
